FAERS Safety Report 5917490-5 (Version None)
Quarter: 2008Q4

REPORT INFORMATION
  Report Type: 
  Country: None (occurrence: None)
  Receive Date: 20081010
  Receipt Date: 20081010
  Transmission Date: 20090506
  Serious: No
  Sender: FDA-Public Use
  Company Number: None

PATIENT
  Age: 51 Year
  Sex: Female
  Weight: 99.7913 kg

DRUGS (1)
  1. CRESTOR [Suspect]
     Indication: BLOOD CHOLESTEROL INCREASED
     Dosage: 10MG  1 DAILY OTHER
     Route: 050
     Dates: start: 20080925, end: 20081009

REACTIONS (7)
  - DRY MOUTH [None]
  - HYPERSENSITIVITY [None]
  - MOUTH BREATHING [None]
  - NASAL CONGESTION [None]
  - RHINITIS [None]
  - SINUS DISORDER [None]
  - SLEEP DISORDER [None]
